FAERS Safety Report 19410430 (Version 1)
Quarter: 2021Q2

REPORT INFORMATION
  Report Type: Spontaneous
  Country: US (occurrence: US)
  Receive Date: 20210611
  Receipt Date: 20210611
  Transmission Date: 20210717
  Serious: Yes (Other)
  Sender: FDA-Public Use
  Company Number: None

PATIENT
  Age: 61 Year
  Sex: Female

DRUGS (1)
  1. NEURONTIN [Suspect]
     Active Substance: GABAPENTIN
     Route: 048

REACTIONS (4)
  - Tongue disorder [None]
  - Drug ineffective [None]
  - Wrong technique in product usage process [None]
  - Throat irritation [None]

NARRATIVE: CASE EVENT DATE: 20210610
